FAERS Safety Report 9893300 (Version 1)
Quarter: 2014Q1

REPORT INFORMATION
  Report Type: Spontaneous
  Country: AU (occurrence: AU)
  Receive Date: 20140213
  Receipt Date: 20140213
  Transmission Date: 20141002
  Serious: No
  Sender: FDA-Public Use
  Company Number: AU-JNJFOC-20140200181

PATIENT
  Sex: Female

DRUGS (3)
  1. DUROGESIC [Suspect]
     Indication: PRODUCT USED FOR UNKNOWN INDICATION
     Route: 062
  2. LYRICA [Concomitant]
     Dosage: 150 MG IN THE MORNING AND 150 MG AT NIGHT
     Route: 065
  3. TRAMADOL [Concomitant]
     Indication: PAIN MANAGEMENT
     Dosage: 150 MG IN THE MORNING AND 150 MG AT NIGHT
     Route: 065

REACTIONS (3)
  - Product quality issue [Unknown]
  - Wrong technique in drug usage process [Unknown]
  - Breakthrough pain [Not Recovered/Not Resolved]
